FAERS Safety Report 20433046 (Version 3)
Quarter: 2022Q1

REPORT INFORMATION
  Report Type: Spontaneous
  Country: US (occurrence: US)
  Receive Date: 20220205
  Receipt Date: 20220326
  Transmission Date: 20220424
  Serious: No
  Sender: FDA-Public Use
  Company Number: US-SANOFI-00946967

PATIENT
  Age: 75 Year
  Sex: Female

DRUGS (1)
  1. LANTUS SOLOSTAR [Suspect]
     Active Substance: INSULIN GLARGINE
     Indication: Type 2 diabetes mellitus
     Dosage: 30 IU, QD

REACTIONS (5)
  - Injection site pain [Unknown]
  - Device mechanical issue [Unknown]
  - Device defective [Unknown]
  - Incorrect dose administered by device [Unknown]
  - Device operational issue [Unknown]
